FAERS Safety Report 17210971 (Version 1)
Quarter: 2019Q4

REPORT INFORMATION
  Report Type: Spontaneous
  Country: CL (occurrence: CL)
  Receive Date: 20191227
  Receipt Date: 20191227
  Transmission Date: 20200122
  Serious: Yes (Hospitalization)
  Sender: FDA-Public Use
  Company Number: CL-BIOMARINAP-CL-2019-127682

PATIENT
  Sex: Male

DRUGS (1)
  1. NAGLAZYME [Suspect]
     Active Substance: GALSULFASE
     Indication: MUCOPOLYSACCHARIDOSIS VI
     Route: 065

REACTIONS (6)
  - Pallor [Unknown]
  - Total lung capacity abnormal [Unknown]
  - Product dose omission [Unknown]
  - Fatigue [Unknown]
  - Dyspnoea [Unknown]
  - Secretion discharge [Unknown]

NARRATIVE: CASE EVENT DATE: 20191219
